FAERS Safety Report 18218816 (Version 1)
Quarter: 2020Q3

REPORT INFORMATION
  Report Type: Spontaneous
  Country: US (occurrence: US)
  Receive Date: 20200901
  Receipt Date: 20200901
  Transmission Date: 20201103
  Serious: Yes (Other)
  Sender: FDA-Public Use
  Company Number: US-TEVA-2020-US-1821451

PATIENT
  Sex: Male

DRUGS (5)
  1. LOSARTAN. [Suspect]
     Active Substance: LOSARTAN
     Indication: HYPERTENSION
     Route: 065
  2. AZACITIDINE. [Suspect]
     Active Substance: AZACITIDINE
     Indication: MYELODYSPLASTIC SYNDROME
     Dosage: 20 CYCLES
     Route: 065
     Dates: start: 201504, end: 201611
  3. DEXTROSE. [Concomitant]
     Active Substance: DEXTROSE
     Indication: PRODUCT USED FOR UNKNOWN INDICATION
     Dosage: IGF METHOTREXATE IV INFUSION IN 250ML OF 5% GLUCOSE ON DAYS 1, 8, AND 15 OF A FOUR?WEEK TREATMENT...
     Route: 041
  4. DECITABINE. [Suspect]
     Active Substance: DECITABINE
     Indication: MYELODYSPLASTIC SYNDROME
     Dosage: 8 CYCLES
     Route: 065
     Dates: start: 201611, end: 201802
  5. 765IGF?METHOTREXATE [Suspect]
     Active Substance: METHOTREXATE
     Indication: MYELODYSPLASTIC SYNDROME
     Dosage: 0.20 MICROEQ/KG IGF?METHOTREXATE AS A 90?MIN INFUSION IN 250 ML OF 5% GLUCOSE ON DAYS 1, 8, AND 1...
     Route: 041

REACTIONS (6)
  - Drug ineffective [Unknown]
  - Non-cardiac chest pain [Unknown]
  - Cytopenia [Recovered/Resolved]
  - Syncope [Unknown]
  - Peripheral sensorimotor neuropathy [Unknown]
  - Orthostatic hypotension [Unknown]
